FAERS Safety Report 8759956 (Version 4)
Quarter: 2013Q1

REPORT INFORMATION
  Report Type: Spontaneous
  Country: JP (occurrence: JP)
  Receive Date: 20120829
  Receipt Date: 20130205
  Transmission Date: 20140127
  Serious: Yes (Hospitalization)
  Sender: FDA-Public Use
  Company Number: JP-GLAXOSMITHKLINE-B0824345A

PATIENT
  Age: 65 Year
  Sex: Male

DRUGS (11)
  1. SERETIDE (50MCG/250MCG) [Suspect]
     Indication: CHRONIC OBSTRUCTIVE PULMONARY DISEASE
     Dosage: 250MCG TWICE PER DAY
     Route: 055
  2. SULTANOL [Suspect]
     Indication: CHRONIC OBSTRUCTIVE PULMONARY DISEASE
     Dosage: 200MCG PER DAY
     Route: 055
     Dates: start: 20120816, end: 20120816
  3. PREDNISOLONE [Concomitant]
     Indication: CHRONIC OBSTRUCTIVE PULMONARY DISEASE
     Dosage: 30MG PER DAY
     Route: 048
     Dates: start: 20120815
  4. TAKEPRON [Concomitant]
     Dosage: 15MG PER DAY
     Route: 048
     Dates: start: 20120815
  5. UNASYN-S [Concomitant]
     Indication: PNEUMONIA
     Dosage: 1.5G FOUR TIMES PER DAY
     Route: 042
     Dates: start: 20120814
  6. ISOTONIC SODIUM CHLORIDE SOLUTION [Concomitant]
     Route: 042
     Dates: start: 20120814, end: 20120816
  7. ISOTONIC SODIUM CHLORIDE SOLUTION [Concomitant]
     Dosage: 100ML FOUR TIMES PER DAY
     Route: 042
     Dates: start: 20120817, end: 20120820
  8. UNKNOWN MEDICATION [Concomitant]
     Dosage: 500ML TWICE PER DAY
     Route: 042
     Dates: start: 20120814, end: 20120814
  9. ZITHROMAC [Concomitant]
     Indication: PNEUMONIA
     Dosage: 500MG PER DAY
     Route: 042
     Dates: start: 20120814, end: 20120816
  10. DISTILLED WATER [Concomitant]
     Indication: PNEUMONIA
     Dosage: 5ML PER DAY
     Route: 042
  11. SOLITA-T NO.3 [Concomitant]
     Dosage: 500ML TWICE PER DAY
     Route: 042
     Dates: start: 20120815, end: 20120815

REACTIONS (8)
  - Chronic obstructive pulmonary disease [Unknown]
  - Hypersensitivity [Recovering/Resolving]
  - Oxygen saturation decreased [Recovering/Resolving]
  - Productive cough [Recovering/Resolving]
  - Erythema [Recovered/Resolved]
  - Feeling cold [Recovering/Resolving]
  - Wheezing [Recovered/Resolved]
  - Hyperhidrosis [Unknown]
